FAERS Safety Report 4749993-3 (Version None)
Quarter: 2005Q3

REPORT INFORMATION
  Report Type: 
  Country: None (occurrence: None)
  Receive Date: 20050822
  Receipt Date: 20050520
  Transmission Date: 20060218
  Serious: Yes (Other)
  Sender: FDA-Public Use
  Company Number: US-MERCK-0505USA02701

PATIENT
  Age: 69 Year
  Sex: Male
  Weight: 116 kg

DRUGS (6)
  1. VIOXX [Suspect]
     Indication: NECK PAIN
     Route: 048
     Dates: start: 19990101, end: 20040901
  2. VIOXX [Suspect]
     Route: 048
     Dates: start: 19990101, end: 20040901
  3. VIOXX [Suspect]
     Indication: BACK PAIN
     Route: 048
     Dates: start: 19990101, end: 20040901
  4. VIOXX [Suspect]
     Route: 048
     Dates: start: 19990101, end: 20040901
  5. CELEBREX [Suspect]
     Indication: PAIN
     Route: 065
  6. ZANTAC [Concomitant]
     Route: 065

REACTIONS (4)
  - BLOOD CHOLESTEROL INCREASED [None]
  - CEREBROVASCULAR ACCIDENT [None]
  - GASTROINTESTINAL HAEMORRHAGE [None]
  - OESOPHAGEAL DISORDER [None]
